FAERS Safety Report 11786634 (Version 2)
Quarter: 2016Q1

REPORT INFORMATION
  Report Type: Report from Study
  Country: CA (occurrence: CA)
  Receive Date: 20151130
  Receipt Date: 20160118
  Transmission Date: 20160525
  Serious: Yes (Other)
  Sender: FDA-Public Use
  Company Number: CA-JNJFOC-20151125434

PATIENT
  Sex: Male
  Weight: 69.4 kg

DRUGS (1)
  1. REMICADE [Suspect]
     Active Substance: INFLIXIMAB
     Indication: CROHN^S DISEASE
     Route: 042
     Dates: start: 20121009

REACTIONS (4)
  - Sinus bradycardia [Unknown]
  - Sinus arrhythmia [Unknown]
  - Myocardial infarction [Unknown]
  - Abdominal pain [Unknown]
